FAERS Safety Report 13265695 (Version 8)
Quarter: 2019Q4

REPORT INFORMATION
  Report Type: Spontaneous
  Country: GB (occurrence: GB)
  Receive Date: 20170223
  Receipt Date: 20191217
  Transmission Date: 20200122
  Serious: Yes (Other)
  Sender: FDA-Public Use
  Company Number: GB-MYLANLABS-2017M1010242

PATIENT
  Age: 50 Year
  Sex: Male

DRUGS (3)
  1. CLOZARIL [Suspect]
     Active Substance: CLOZAPINE
     Dosage: UNK
     Route: 048
     Dates: start: 20180914
  2. CLOZARIL [Suspect]
     Active Substance: CLOZAPINE
     Indication: SCHIZOPHRENIA
     Dosage: UNK
     Route: 048
     Dates: start: 20021013
  3. CLOZARIL [Suspect]
     Active Substance: CLOZAPINE
     Dosage: UNK
     Route: 048
     Dates: start: 20190418

REACTIONS (11)
  - Mental impairment [Unknown]
  - Thrombocytopenia [Not Recovered/Not Resolved]
  - White blood cell count increased [Recovered/Resolved]
  - Neutropenia [Recovered/Resolved]
  - Cytopenia [Unknown]
  - Lymphopenia [Unknown]
  - Product use in unapproved indication [Unknown]
  - Lower respiratory tract infection [Unknown]
  - White blood cell count decreased [Recovered/Resolved]
  - Neutrophil count increased [Recovered/Resolved]
  - Splenomegaly [Recovered/Resolved]

NARRATIVE: CASE EVENT DATE: 20170117
